FAERS Safety Report 21089213 (Version 2)
Quarter: 2022Q3

REPORT INFORMATION
  Report Type: Report from Study
  Country: US (occurrence: US)
  Receive Date: 20220715
  Receipt Date: 20220919
  Transmission Date: 20221026
  Serious: No
  Sender: FDA-Public Use
  Company Number: US-BIOVITRUM-2022US07412

PATIENT
  Sex: Female

DRUGS (1)
  1. KINERET [Suspect]
     Active Substance: ANAKINRA
     Indication: Product used for unknown indication
     Dates: start: 20220518

REACTIONS (9)
  - Swelling [Unknown]
  - Contusion [Recovering/Resolving]
  - Paraesthesia [Unknown]
  - Injection site induration [Unknown]
  - Injection site erythema [Unknown]
  - Injection site pruritus [Recovered/Resolved]
  - Rash [Recovered/Resolved]
  - Pruritus [Recovered/Resolved]
  - Injection site bruising [Unknown]
